FAERS Safety Report 10331102 (Version 1)
Quarter: 2014Q3

REPORT INFORMATION
  Report Type: Report from Study
  Country: CA (occurrence: CA)
  Receive Date: 20140722
  Receipt Date: 20140722
  Transmission Date: 20150326
  Serious: Yes (Other)
  Sender: FDA-Public Use
  Company Number: CA-JNJFOC-20140712384

PATIENT
  Age: 52 Year
  Sex: Female
  Weight: 51.5 kg

DRUGS (1)
  1. REMICADE [Suspect]
     Active Substance: INFLIXIMAB
     Indication: CROHN^S DISEASE
     Route: 042
     Dates: start: 20140214

REACTIONS (2)
  - Vaginal fistula [Unknown]
  - Feeling hot [Unknown]

NARRATIVE: CASE EVENT DATE: 20140715
